FAERS Safety Report 7723380-8 (Version None)
Quarter: 2011Q3

REPORT INFORMATION
  Report Type: 
  Country: None (occurrence: None)
  Receive Date: 20110826
  Receipt Date: 20110810
  Transmission Date: 20111222
  Serious: Yes (Hospitalization)
  Sender: FDA-Public Use
  Company Number: PRAN20110004

PATIENT
  Age: 7 Month
  Sex: Male

DRUGS (5)
  1. DIGOXIN [Concomitant]
  2. FUROSEMIDE [Concomitant]
  3. CAPTOPRIL [Concomitant]
  4. SPIRONOLACTONE [Concomitant]
  5. PROPRANOLOL HYDROCHLORIDE [Suspect]
     Indication: CARDIAC FAILURE
     Dosage: 0.3 MG/KG, 3 IN 1 D, GASTROENTERAL USE

REACTIONS (10)
  - CULTURE POSITIVE [None]
  - GENERAL PHYSICAL HEALTH DETERIORATION [None]
  - PULMONARY OEDEMA [None]
  - SYSTEMIC INFLAMMATORY RESPONSE SYNDROME [None]
  - RESPIRATORY FAILURE [None]
  - HISTIOCYTOSIS HAEMATOPHAGIC [None]
  - PULMONARY HYPERTENSIVE CRISIS [None]
  - MEDICAL DEVICE COMPLICATION [None]
  - ESCHERICHIA INFECTION [None]
  - HEPATIC FAILURE [None]
